FAERS Safety Report 7006047-3 (Version None)
Quarter: 2010Q3

REPORT INFORMATION
  Report Type: 
  Country: None (occurrence: None)
  Receive Date: 20100917
  Receipt Date: 20100902
  Transmission Date: 20110219
  Serious: Yes (Other)
  Sender: FDA-Public Use
  Company Number: AUR-APL-2010-01153

PATIENT
  Age: 19 Year
  Sex: Female

DRUGS (7)
  1. AMOXICILLIN [Suspect]
     Indication: INTENTIONAL OVERDOSE
     Dosage: ORAL
     Route: 048
     Dates: start: 20100413
  2. DO-DO [Suspect]
     Indication: INTENTIONAL OVERDOSE
     Dosage: ORAL
     Route: 048
     Dates: start: 20100413
  3. NYTOL [Suspect]
     Indication: INTENTIONAL OVERDOSE
     Dosage: ORAL
     Route: 048
     Dates: start: 20100413
  4. PARACETAMOL [Suspect]
     Indication: INTENTIONAL OVERDOSE
     Dosage: ORAL
     Route: 048
     Dates: start: 20100413
  5. PHENYLEPHRINE HCL [Suspect]
     Indication: INTENTIONAL OVERDOSE
     Dosage: ORAL
     Route: 048
     Dates: start: 20100413
  6. THEOPHYLLINE [Suspect]
     Indication: INTENTIONAL OVERDOSE
     Dosage: ORAL
     Route: 048
     Dates: start: 20100413
  7. ZOPICLONE [Concomitant]
     Indication: INTENTIONAL OVERDOSE
     Dosage: 71.25 MG ORAL
     Route: 048
     Dates: start: 20100413

REACTIONS (2)
  - INTENTIONAL OVERDOSE [None]
  - RHABDOMYOLYSIS [None]
